FAERS Safety Report 5830879-8 (Version None)
Quarter: 2008Q3

REPORT INFORMATION
  Report Type: 
  Country: None (occurrence: None)
  Receive Date: 20080801
  Receipt Date: 20080325
  Transmission Date: 20090109
  Serious: Yes (Other)
  Sender: FDA-Public Use
  Company Number: US-BRISTOL-MYERS SQUIBB COMPANY-14039697

PATIENT
  Age: 64 Year
  Sex: Male
  Weight: 95 kg

DRUGS (7)
  1. COUMADIN [Suspect]
     Indication: KNEE OPERATION
     Dosage: CONTINUED THERAPY FOR 6-8WEEKS
     Route: 065
     Dates: start: 20070401, end: 20070101
  2. PLAVIX [Suspect]
     Indication: STENT PLACEMENT
     Route: 048
     Dates: start: 20070601, end: 20080101
  3. ASPIRIN [Suspect]
     Indication: CORONARY ARTERY DISEASE
     Route: 048
     Dates: start: 20030101
  4. VYTORIN [Concomitant]
     Indication: HYPERLIPIDAEMIA
     Dosage: 1 DOSAGE FORM=10/40MG
     Route: 065
     Dates: start: 20050601
  5. VYTORIN [Concomitant]
     Indication: CORONARY ARTERY DISEASE
     Dosage: 1 DOSAGE FORM=10/40MG
     Route: 065
     Dates: start: 20050601
  6. CITALOPRAM HYDROBROMIDE [Concomitant]
     Indication: DYSTHYMIC DISORDER
     Route: 048
     Dates: start: 20060701
  7. METOPROLOL [Concomitant]
     Indication: CORONARY ARTERY DISEASE
     Route: 048
     Dates: start: 20030101

REACTIONS (2)
  - ASTHENIA [None]
  - HAEMOLYTIC ANAEMIA [None]
